FAERS Safety Report 9157568 (Version 1)
Quarter: 2013Q1

REPORT INFORMATION
  Report Type: Spontaneous
  Country: US (occurrence: None)
  Receive Date: 20130311
  Receipt Date: 20130311
  Transmission Date: 20140127
  Serious: Yes (Hospitalization)
  Sender: FDA-Public Use
  Company Number: None

PATIENT
  Age: 87 Year
  Sex: Female

DRUGS (8)
  1. WARFARIN [Suspect]
  2. LORTAB ELIXIR [Concomitant]
  3. CALCIUM + VITAMIN D [Concomitant]
  4. CELEXA [Concomitant]
  5. ARICEPT [Concomitant]
  6. FERROUS SULFATE [Concomitant]
  7. SEROQUEL [Concomitant]
  8. SENNA [Concomitant]

REACTIONS (4)
  - Fall [None]
  - International normalised ratio increased [None]
  - Laceration [None]
  - Haemoglobin decreased [None]
